FAERS Safety Report 26131392 (Version 1)
Quarter: 2025Q4

REPORT INFORMATION
  Report Type: Spontaneous
  Country: JP (occurrence: JP)
  Receive Date: 20251208
  Receipt Date: 20251208
  Transmission Date: 20260118
  Serious: Yes (Other)
  Sender: ALEXION PHARMACEUTICALS
  Company Number: JP-ASTRAZENECA-202511JPN026138JP

PATIENT
  Age: 63 Year
  Sex: Male
  Weight: 50.7 kg

DRUGS (9)
  1. IMFINZI [Suspect]
     Active Substance: DURVALUMAB
     Indication: Lung neoplasm malignant
     Dosage: 500 MILLIGRAM
     Dates: start: 20230808, end: 20231129
  2. IMFINZI [Suspect]
     Active Substance: DURVALUMAB
     Dosage: 1500 MILLIGRAM
     Dates: start: 20231214, end: 20240307
  3. CISPLATIN [Concomitant]
     Active Substance: CISPLATIN
     Dosage: UNK
     Route: 065
  4. SITAGLIPTIN [Concomitant]
     Active Substance: SITAGLIPTIN
     Dosage: UNK
     Route: 065
  5. AMBROXOL [Concomitant]
     Active Substance: AMBROXOL
     Dosage: UNK
     Route: 065
  6. METHYLCOBALAMIN [Concomitant]
     Active Substance: METHYLCOBALAMIN
     Dosage: UNK
     Route: 065
  7. LANSOPRAZOLE [Concomitant]
     Active Substance: LANSOPRAZOLE
     Dosage: UNK
     Route: 065
  8. Heparinoid [Concomitant]
     Dosage: UNK
     Route: 065
  9. OLOPATADINE [Concomitant]
     Active Substance: OLOPATADINE
     Dosage: 10 MILLIGRAM, QD
     Route: 065

REACTIONS (3)
  - Malignant neoplasm progression [Unknown]
  - Radiation pneumonitis [Unknown]
  - Rash erythematous [Recovered/Resolved]

NARRATIVE: CASE EVENT DATE: 20230820
